FAERS Safety Report 9554088 (Version 2)
Quarter: 2013Q3

REPORT INFORMATION
  Report Type: Spontaneous
  Country: None (occurrence: US)
  Receive Date: 20130925
  Receipt Date: 20130925
  Transmission Date: 20140515
  Serious: Yes (Hospitalization, Other)
  Sender: FDA-Public Use
  Company Number: US-ALLERGAN-1313816US

PATIENT
  Age: 89 Year
  Sex: Male

DRUGS (1)
  1. BOTOX [Suspect]
     Indication: HYPERTONIC BLADDER
     Dosage: UNK, SINGLE
     Dates: start: 201308, end: 201308

REACTIONS (7)
  - Fall [Unknown]
  - Urinary tract infection [Unknown]
  - Asthenia [Unknown]
  - Weight decreased [Unknown]
  - Bladder catheterisation [Unknown]
  - Decreased appetite [Unknown]
  - Abdominal pain upper [Unknown]
